FAERS Safety Report 6687854-3 (Version None)
Quarter: 2010Q2

REPORT INFORMATION
  Report Type: 
  Country: None (occurrence: None)
  Receive Date: 20100409
  Receipt Date: 20091015
  Transmission Date: 20101027
  Serious: Yes (Hospitalization, Other)
  Sender: FDA-Public Use
  Company Number: AE  2009-140

PATIENT
  Age: 64 Year
  Sex: Female

DRUGS (11)
  1. FAZACLO ODT [Suspect]
     Dosage: 200 MG DAILY PO
     Route: 048
     Dates: start: 20090505
  2. BENAZEPRIL HYDROCHLORIDE [Concomitant]
  3. SYNTHROID [Concomitant]
  4. LASIX [Concomitant]
  5. COREG [Concomitant]
  6. MULTI-VITAMIN [Concomitant]
  7. STOOL SOFTENER [Concomitant]
  8. LITHIUM CARBONATE [Concomitant]
  9. DEPAKOTE ER [Concomitant]
  10. PRISTIQ [Concomitant]
  11. NAMENDA [Concomitant]

REACTIONS (2)
  - AGRANULOCYTOSIS [None]
  - LEUKOPENIA [None]
